FAERS Safety Report 25644037 (Version 1)
Quarter: 2025Q3

REPORT INFORMATION
  Report Type: Spontaneous
  Country: IN (occurrence: IN)
  Receive Date: 20250805
  Receipt Date: 20250805
  Transmission Date: 20251021
  Serious: Yes (Death, Other)
  Sender: AMGEN
  Company Number: IN-AMGEN-INDSP2025151032

PATIENT

DRUGS (1)
  1. EVOLOCUMAB [Suspect]
     Active Substance: EVOLOCUMAB
     Indication: Arteriosclerosis
     Dosage: 140 MILLIGRAM, Q2WK (FOR 12 MONTHS)
     Route: 058

REACTIONS (3)
  - Cardiac death [Fatal]
  - Myocardial infarction [Unknown]
  - Ischaemic stroke [Unknown]
